FAERS Safety Report 8695169 (Version 2)
Quarter: 2014Q3

REPORT INFORMATION
  Report Type: Spontaneous
  Country: US (occurrence: US)
  Receive Date: 20120731
  Receipt Date: 20140806
  Transmission Date: 20150326
  Serious: Yes (Hospitalization, Disabling, Other)
  Sender: FDA-Public Use
  Company Number: US-009507513-1207USA008709

PATIENT
  Sex: Female
  Weight: 83.9 kg

DRUGS (1)
  1. NUVARING [Suspect]
     Active Substance: ETHINYL ESTRADIOL\ETONOGESTREL
     Dosage: UNK
     Route: 067
     Dates: start: 201004, end: 20100521

REACTIONS (17)
  - Venous stent insertion [Unknown]
  - Treatment failure [Unknown]
  - Renal failure acute [Recovering/Resolving]
  - Hyponatraemia [Unknown]
  - Hypoaesthesia [Unknown]
  - Systemic lupus erythematosus [Unknown]
  - Deep vein thrombosis [Unknown]
  - Nephrolithiasis [Unknown]
  - Post thrombotic syndrome [Recovered/Resolved]
  - Back pain [Unknown]
  - Abdominal pain lower [Unknown]
  - Blood creatine phosphokinase increased [Unknown]
  - Uterine cyst [Unknown]
  - Abdominal pain upper [Unknown]
  - Pulmonary embolism [Unknown]
  - Renal colic [Unknown]
  - Iron deficiency anaemia [Unknown]

NARRATIVE: CASE EVENT DATE: 20100507
